FAERS Safety Report 12435399 (Version 1)
Quarter: 2016Q2

REPORT INFORMATION
  Report Type: Spontaneous
  Country: US (occurrence: US)
  Receive Date: 20160603
  Receipt Date: 20160603
  Transmission Date: 20160815
  Serious: No
  Sender: FDA-Public Use
  Company Number: US-ROCHE-1590629

PATIENT
  Sex: Male

DRUGS (4)
  1. LIPITOR [Concomitant]
     Active Substance: ATORVASTATIN CALCIUM
     Indication: BLOOD CHOLESTEROL INCREASED
  2. XELODA [Suspect]
     Active Substance: CAPECITABINE
     Indication: RECTAL ADENOCARCINOMA
     Dosage: BID; 14 DAYS ON FOLLOWED BY 7 DAYS REST
     Route: 065
     Dates: end: 201409
  3. ZESTORETIC [Concomitant]
     Active Substance: HYDROCHLOROTHIAZIDE\LISINOPRIL
     Indication: HYPERTENSION
  4. XELODA [Suspect]
     Active Substance: CAPECITABINE
     Dosage: BID; 14 DAYS ON FOLLOWED BY 7 DAYS REST
     Route: 065
     Dates: start: 201503

REACTIONS (2)
  - Impaired healing [Unknown]
  - Abscess [Unknown]
